FAERS Safety Report 16349304 (Version 6)
Quarter: 2020Q1

REPORT INFORMATION
  Report Type: Report from Study
  Country: DE (occurrence: DE)
  Receive Date: 20190523
  Receipt Date: 20200114
  Transmission Date: 20200409
  Serious: Yes (Hospitalization, Other)
  Sender: FDA-Public Use
  Company Number: DE-BRISTOL-MYERS SQUIBB COMPANY-BMS-2019-048697

PATIENT
  Age: 73 Year
  Sex: Female
  Weight: 70 kg

DRUGS (3)
  1. LOPERAMIDE [Concomitant]
     Active Substance: LOPERAMIDE
     Indication: DIARRHOEA
     Dosage: UNK, MAX 6 KG
     Route: 048
     Dates: start: 20190409, end: 20190414
  2. IPILIMUMAB [Suspect]
     Active Substance: IPILIMUMAB
     Indication: TRANSITIONAL CELL CARCINOMA
     Dosage: 210 MILLIGRAM, NUMBER OF ADMINISTRATIONS,TIME INTERVAL 46 DAYS
     Route: 065
     Dates: start: 20190115
  3. NIVOLUMAB [Suspect]
     Active Substance: NIVOLUMAB
     Indication: TRANSITIONAL CELL CARCINOMA
     Dosage: 70 MILLIGRAM, TOTAL NUMBER OF ADNINSTRATIONS 10, TIME INTERVAL 46 DAYS
     Route: 065
     Dates: start: 20180914

REACTIONS (4)
  - Metastases to liver [Not Recovered/Not Resolved]
  - Pancreatitis [Recovered/Resolved]
  - Hypertensive crisis [Recovered/Resolved]
  - Colitis [Recovered/Resolved]

NARRATIVE: CASE EVENT DATE: 20190414
